FAERS Safety Report 4528974-9 (Version None)
Quarter: 2004Q4

REPORT INFORMATION
  Report Type: 
  Country: None (occurrence: None)
  Receive Date: 20041214
  Receipt Date: 20041201
  Transmission Date: 20050328
  Serious: Yes (Life-Threatening, Other)
  Sender: FDA-Public Use
  Company Number: 2004093436

PATIENT
  Age: 54 Year
  Sex: Male

DRUGS (5)
  1. LIPITOR [Suspect]
     Indication: MYOCARDIAL INFARCTION
     Dosage: (10 MG, UNKNOWN), ORAL
     Route: 048
  2. PIP/TAZO (PIPERACILLIN SODIUM, TAZOBACTAM SODIUM) [Concomitant]
  3. VANCOMYCIN [Concomitant]
  4. METCLOPRAMIDE (METOCLOPRAMIDE) [Concomitant]
  5. CLOPIDOGREL (CLOPIDOGREL) [Concomitant]

REACTIONS (4)
  - MYOCARDIAL INFARCTION [None]
  - RENAL FAILURE ACUTE [None]
  - RHABDOMYOLYSIS [None]
  - SEPSIS [None]
